FAERS Safety Report 9343796 (Version 1)
Quarter: 2013Q2

REPORT INFORMATION
  Report Type: Spontaneous
  Country: CA (occurrence: CA)
  Receive Date: 20130612
  Receipt Date: 20130612
  Transmission Date: 20140414
  Serious: Yes (Hospitalization, Other)
  Sender: FDA-Public Use
  Company Number: CA-AMGEN-CANSP2013040149

PATIENT
  Age: 72 Year
  Sex: Female
  Weight: 67 kg

DRUGS (16)
  1. PROLIA [Suspect]
     Indication: PRODUCT USED FOR UNKNOWN INDICATION
     Dosage: 60 MG, Q6MO
     Route: 058
     Dates: start: 20121112
  2. VENLAFAXINE                        /01233802/ [Concomitant]
     Dosage: 75 MG, QD
  3. LIPITOR [Concomitant]
     Dosage: 10 MG, QD
     Route: 048
  4. ELAVIL                             /00002202/ [Concomitant]
     Dosage: 10 MG, QD
     Route: 048
  5. TYLENOL                            /00020001/ [Concomitant]
  6. SENOKOT                            /00142201/ [Concomitant]
     Dosage: UNK UNK, QD
  7. ATORVASTATIN [Concomitant]
     Dosage: 20 MG, QD
  8. POTASSIUM [Concomitant]
  9. PROCYTOX [Concomitant]
     Dosage: 50 MG, QD
  10. VITAMIN D                          /00107901/ [Concomitant]
  11. COLACE [Concomitant]
     Dosage: UNK UNK, QD
  12. PREVACID [Concomitant]
  13. AMICA [Concomitant]
  14. POLYSPORIN                         /00130201/ [Concomitant]
  15. NISTATIN [Concomitant]
  16. GLEEVEC [Concomitant]

REACTIONS (7)
  - Acute lymphocytic leukaemia [Unknown]
  - Pain [Recovered/Resolved]
  - Hyperhidrosis [Unknown]
  - Myalgia [Recovered/Resolved]
  - Pruritus [Recovered/Resolved]
  - Hepatic cyst [Unknown]
  - Arthritis [Unknown]
